FAERS Safety Report 8870427 (Version 1)
Quarter: 2012Q4

REPORT INFORMATION
  Report Type: 
  Country: US (occurrence: US)
  Receive Date: 20121026
  Receipt Date: 20121026
  Transmission Date: 20130627
  Serious: No
  Sender: FDA-Public Use
  Company Number: US-AMGEN-USASP2012047167

PATIENT
  Sex: Female
  Weight: 61.22 kg

DRUGS (9)
  1. ENBREL [Suspect]
     Indication: PRODUCT USED FOR UNKNOWN INDICATION
     Dosage: 50 mg, qwk
     Route: 058
  2. RESTASIS [Concomitant]
     Dosage: EMU 0.05%
  3. PREMARIN [Concomitant]
     Dosage: 0.3 mg, UNK
  4. METOPROLOL TARTRAS [Concomitant]
     Dosage: 25 mg, UNK
  5. VITAMIN D /00107901/ [Concomitant]
     Dosage: 1000 unit, UNK
  6. VITAMIN B COMPLEX [Concomitant]
     Dosage: UNK
  7. CALCIUM [Concomitant]
     Dosage: 500 mg, UNK
  8. MULTIVITAMIN                       /00097801/ [Concomitant]
     Dosage: UNK
  9. OMEGA 3                            /06850301/ [Concomitant]
     Dosage: 1000 mg, UNK

REACTIONS (1)
  - Rash [Unknown]
